FAERS Safety Report 17599707 (Version 4)
Quarter: 2021Q4

REPORT INFORMATION
  Report Type: Spontaneous
  Country: US (occurrence: US)
  Receive Date: 20200330
  Receipt Date: 20211107
  Transmission Date: 20220303
  Serious: No
  Sender: FDA-Public Use
  Company Number: US-SA-2020SA077449

PATIENT
  Age: 64 Year
  Sex: Male
  Weight: 74.83 kg

DRUGS (17)
  1. FABRAZYME [Suspect]
     Active Substance: AGALSIDASE BETA
     Indication: Lipidosis
     Dosage: 0.99 MG/KG (70 MG/KG), QOW
     Route: 041
     Dates: start: 20191127
  2. FABRAZYME [Suspect]
     Active Substance: AGALSIDASE BETA
     Indication: Fabry^s disease
     Dosage: 0.935 MG/KG (70 MG), QOW
     Route: 041
  3. DIPHENHYDRAMINE [Concomitant]
     Active Substance: DIPHENHYDRAMINE
     Dosage: UNK
     Route: 065
  4. HEPARIN [Concomitant]
     Active Substance: HEPARIN SODIUM
     Route: 065
  5. LIDOCAINE\PRILOCAINE [Concomitant]
     Active Substance: LIDOCAINE\PRILOCAINE
     Route: 065
  6. SODIUM CHLORIDE [Concomitant]
     Active Substance: SODIUM CHLORIDE
     Route: 065
  7. STERILE WATER [Concomitant]
     Active Substance: WATER
     Route: 065
  8. EPINEPHRINE [Concomitant]
     Active Substance: EPINEPHRINE
     Route: 065
  9. LIPITOR [Concomitant]
     Active Substance: ATORVASTATIN CALCIUM
     Route: 065
  10. LOSARTAN [Concomitant]
     Active Substance: LOSARTAN
     Route: 065
  11. LOPRESSOR [Concomitant]
     Active Substance: METOPROLOL TARTRATE
     Route: 065
  12. DILTIAZEM [Concomitant]
     Active Substance: DILTIAZEM
     Route: 065
  13. IBUPROFEN [Concomitant]
     Active Substance: IBUPROFEN
     Dosage: UNK
     Route: 065
  14. CYCLOBENZAPRINE [Concomitant]
     Active Substance: CYCLOBENZAPRINE
     Dosage: UNK
     Route: 065
  15. ZETIA [Concomitant]
     Active Substance: EZETIMIBE
     Dosage: UNK
     Route: 065
  16. ACETAMINOPHEN [Concomitant]
     Active Substance: ACETAMINOPHEN
  17. STERILE WATER [Concomitant]
     Active Substance: WATER

REACTIONS (6)
  - Neck pain [Unknown]
  - Back injury [Unknown]
  - Tissue infiltration [Unknown]
  - Swelling [Unknown]
  - Weight decreased [Unknown]
  - Arthralgia [Unknown]
